FAERS Safety Report 22600392 (Version 1)
Quarter: 2023Q2

REPORT INFORMATION
  Report Type: Spontaneous
  Country: PL (occurrence: PL)
  Receive Date: 20230614
  Receipt Date: 20230614
  Transmission Date: 20230721
  Serious: Yes (Death, Hospitalization)
  Sender: FDA-Public Use
  Company Number: PL-BoehringerIngelheim-2023-BI-225152

PATIENT
  Age: 91 Year
  Sex: Female

DRUGS (2)
  1. IDARUCIZUMAB [Suspect]
     Active Substance: IDARUCIZUMAB
     Indication: Uterine cancer
  2. IDARUCIZUMAB [Suspect]
     Active Substance: IDARUCIZUMAB
     Indication: Uterine haemorrhage

REACTIONS (3)
  - Cervix carcinoma [Fatal]
  - Metastases to pelvis [Fatal]
  - Thrombosis [Unknown]
